FAERS Safety Report 4932739-3 (Version None)
Quarter: 2006Q1

REPORT INFORMATION
  Report Type: 
  Country: None (occurrence: None)
  Receive Date: 20060301
  Receipt Date: 20060301
  Transmission Date: 20060701
  Serious: Yes (Other)
  Sender: FDA-Public Use
  Company Number: None

PATIENT
  Age: 70 Year
  Sex: Female
  Weight: 63.9572 kg

DRUGS (5)
  1. TAXOTERE [Suspect]
     Indication: URETERIC CANCER METASTATIC
     Dosage: 128.25MG/Q3WEEKS/IV
     Route: 042
     Dates: start: 20051011
  2. GLEEVEC [Suspect]
     Indication: URETERIC CANCER METASTATIC
     Dosage: 600MG/QWD FOR 6 DAYS/PO
     Route: 048
     Dates: start: 20051007, end: 20051012
  3. LORTAB [Concomitant]
  4. TRAGADONE [Concomitant]
  5. NAPROSEN [Concomitant]

REACTIONS (3)
  - MUCOSAL INFLAMMATION [None]
  - ORAL INTAKE REDUCED [None]
  - ORAL PAIN [None]
